FAERS Safety Report 9869235 (Version 2)
Quarter: 2014Q1

REPORT INFORMATION
  Report Type: Spontaneous
  Country: DE (occurrence: DE)
  Receive Date: 20140205
  Receipt Date: 20140304
  Transmission Date: 20141002
  Serious: No
  Sender: FDA-Public Use
  Company Number: DE-AMGEN-DEUSP2014006469

PATIENT
  Age: 24 Year
  Sex: Female
  Weight: 64.7 kg

DRUGS (5)
  1. MIMPARA [Suspect]
     Indication: HYPERPARATHYROIDISM PRIMARY
     Dosage: 30 MG, QD
     Route: 048
     Dates: start: 20120522, end: 20131203
  2. KEPPRA [Concomitant]
     Indication: EPILEPSY
     Dosage: 750 MG, Q12H
     Route: 048
     Dates: start: 2005
  3. LAMOTRIGIN [Concomitant]
     Indication: EPILEPSY
     Dosage: 125 MG, BID
     Route: 048
     Dates: start: 2009
  4. VIGANTOLETTEN [Concomitant]
     Indication: VITAMIN D DEFICIENCY
     Dosage: 1000 UNK, QD
     Route: 048
     Dates: start: 2010
  5. AMITRIPTYLIN [Concomitant]
     Indication: DEPRESSION
     Dosage: 50 MG, QD
     Route: 048

REACTIONS (8)
  - Paraesthesia [Recovered/Resolved]
  - Pain in extremity [Recovered/Resolved]
  - Blood calcium increased [Unknown]
  - Musculoskeletal pain [Recovered/Resolved]
  - Hypoaesthesia [Unknown]
  - Pain [Recovered/Resolved]
  - Muscle spasms [Recovered/Resolved]
  - Headache [Not Recovered/Not Resolved]
